FAERS Safety Report 5942555-1 (Version None)
Quarter: 2008Q4

REPORT INFORMATION
  Report Type: 
  Country: None (occurrence: None)
  Receive Date: 20081105
  Receipt Date: 20081030
  Transmission Date: 20090506
  Serious: Yes (Other)
  Sender: FDA-Public Use
  Company Number: JP-PFIZER INC-2008091942

PATIENT
  Age: 77 Year
  Sex: Female

DRUGS (2)
  1. NORVASC [Suspect]
     Dosage: DAILY DOSE:5MG
     Route: 048
     Dates: start: 20050401, end: 20080101
  2. VALSARTAN [Concomitant]
     Route: 048

REACTIONS (1)
  - LARYNGEAL HAEMORRHAGE [None]
